FAERS Safety Report 7402809-9 (Version None)
Quarter: 2011Q2

REPORT INFORMATION
  Report Type: 
  Country: None (occurrence: None)
  Receive Date: 20110408
  Receipt Date: 20110329
  Transmission Date: 20111010
  Serious: Yes (Hospitalization)
  Sender: FDA-Public Use
  Company Number: NL-MILLENNIUM PHARMACEUTICALS, INC.-2011-01300

PATIENT

DRUGS (9)
  1. VALACICLOVIR [Concomitant]
     Dosage: 500 MG, BID
     Route: 048
  2. VELCADE [Suspect]
     Indication: MULTIPLE MYELOMA
     Dosage: 2.6 MG, UNK
     Route: 042
     Dates: start: 20080130, end: 20080404
  3. ADRIAMYCIN PFS [Suspect]
     Indication: MULTIPLE MYELOMA
     Dosage: 18 MG, UNK
     Route: 042
     Dates: start: 20080130, end: 20080328
  4. DEXAMETHASONE [Suspect]
     Indication: MULTIPLE MYELOMA
     Dosage: 40 MG, UNK
     Route: 048
     Dates: start: 20080130, end: 20080405
  5. FLUCONAZOLE [Concomitant]
     Dosage: 50 MG, UNK
     Route: 048
  6. MS CONTIN [Concomitant]
     Indication: PAIN
     Dosage: 20 MG, BID
     Route: 048
  7. LEGENDAL [Concomitant]
     Indication: CONSTIPATION
     Dosage: 12 G, BID
     Route: 048
  8. ROXITHROMYCIN [Concomitant]
     Dosage: 150 MG, BID
     Route: 048
  9. OMEPRAZOLE [Concomitant]
     Dosage: 40 MG, UNK
     Route: 048
     Dates: start: 20080101

REACTIONS (1)
  - ATRIAL FIBRILLATION [None]
